FAERS Safety Report 12521663 (Version 1)
Quarter: 2016Q3

REPORT INFORMATION
  Report Type: Spontaneous
  Country: IT (occurrence: FR)
  Receive Date: 20160701
  Receipt Date: 20160701
  Transmission Date: 20161109
  Serious: Yes (Other)
  Sender: FDA-Public Use
  Company Number: FR-FRI-1000085756

PATIENT
  Sex: Male

DRUGS (2)
  1. NEBIVOLOL. [Suspect]
     Active Substance: NEBIVOLOL
     Indication: PRODUCT USED FOR UNKNOWN INDICATION
     Dosage: 5 MG
     Route: 048
     Dates: start: 20160527, end: 201606
  2. MOXIFLOXACINE [Suspect]
     Active Substance: MOXIFLOXACIN
     Indication: PRODUCT USED FOR UNKNOWN INDICATION
     Dosage: 400 MG
     Route: 048
     Dates: start: 20160603, end: 201606

REACTIONS (4)
  - Pruritus generalised [Unknown]
  - Lip oedema [Unknown]
  - Reaction to drug excipients [None]
  - Generalised erythema [Unknown]

NARRATIVE: CASE EVENT DATE: 201606
